FAERS Safety Report 20512513 (Version 1)
Quarter: 2022Q1

REPORT INFORMATION
  Report Type: Spontaneous
  Country: US (occurrence: None)
  Receive Date: 20220223
  Receipt Date: 20220223
  Transmission Date: 20220423
  Serious: Yes (Disabling)
  Sender: FDA-Public Use
  Company Number: None

PATIENT
  Age: 67 Year
  Sex: Female
  Weight: 58.5 kg

DRUGS (1)
  1. BOTOX [Suspect]
     Active Substance: ONABOTULINUMTOXINA
     Indication: Headache
     Route: 030
     Dates: start: 20210916, end: 20210916

REACTIONS (7)
  - Paralysis [None]
  - Muscular weakness [None]
  - Balance disorder [None]
  - Headache [None]
  - Dizziness [None]
  - Muscular weakness [None]
  - Muscle fatigue [None]

NARRATIVE: CASE EVENT DATE: 20210916
